FAERS Safety Report 8054542-0 (Version None)
Quarter: 2012Q1

REPORT INFORMATION
  Report Type: 
  Country: None (occurrence: None)
  Receive Date: 20120119
  Receipt Date: 20120110
  Transmission Date: 20120608
  Serious: Yes (Other)
  Sender: FDA-Public Use
  Company Number: NL-BIOGENIDEC-2010BI005371

PATIENT
  Age: 53 Year
  Sex: Female
  Weight: 51 kg

DRUGS (4)
  1. DICLOFENAC [Concomitant]
     Dates: start: 20091012, end: 20091207
  2. CINNARIZINE [Concomitant]
     Indication: HYPERSENSITIVITY
     Dates: start: 20100118
  3. FERROFUMARAAT [Concomitant]
     Dates: start: 20090302, end: 20090525
  4. NATALIZUMAB [Suspect]
     Indication: MULTIPLE SCLEROSIS
     Route: 042
     Dates: start: 20060627, end: 20100216

REACTIONS (1)
  - IDIOPATHIC THROMBOCYTOPENIC PURPURA [None]
